FAERS Safety Report 21097498 (Version 1)
Quarter: 2022Q3

REPORT INFORMATION
  Report Type: Spontaneous
  Country: IT (occurrence: None)
  Receive Date: 20220719
  Receipt Date: 20220719
  Transmission Date: 20221027
  Serious: Yes (Hospitalization, Other)
  Sender: FDA-Public Use
  Company Number: IT-Unichem Pharmaceuticals (USA) Inc-UCM202207-000650

PATIENT
  Age: 19 Year
  Sex: Male

DRUGS (3)
  1. BACLOFEN [Suspect]
     Active Substance: BACLOFEN
     Indication: Drug abuse
     Dosage: UNKNOWN
  2. AMITRIPTYLINE HYDROCHLORIDE [Suspect]
     Active Substance: AMITRIPTYLINE HYDROCHLORIDE
     Indication: Drug abuse
     Dosage: UNKNOWN
  3. OLANZAPINE [Suspect]
     Active Substance: OLANZAPINE
     Indication: Drug abuse
     Dosage: UNKNOWN

REACTIONS (5)
  - Suicide attempt [Unknown]
  - Drug abuse [Unknown]
  - Coma [Unknown]
  - Seizure [Unknown]
  - Withdrawal syndrome [Unknown]
